FAERS Safety Report 22009822 (Version 1)
Quarter: 2023Q1

REPORT INFORMATION
  Report Type: Spontaneous
  Country: US (occurrence: US)
  Receive Date: 20230220
  Receipt Date: 20230220
  Transmission Date: 20230418
  Serious: Yes (Death, Other)
  Sender: FDA-Public Use
  Company Number: US-STRIDES ARCOLAB LIMITED-2023SP002268

PATIENT
  Age: 67 Year
  Sex: Male

DRUGS (23)
  1. ETOPOSIDE [Suspect]
     Active Substance: ETOPOSIDE
     Indication: Cutaneous T-cell lymphoma
     Dosage: UNK
     Route: 065
  2. PREDNISOLONE [Suspect]
     Active Substance: PREDNISOLONE
     Indication: Neuralgia
     Dosage: 80 MILLIGRAM, PER DAY (ON ENCOUNTER DAY 9)
     Route: 065
  3. PREDNISOLONE [Suspect]
     Active Substance: PREDNISOLONE
     Indication: Inflammatory pain
     Dosage: 30 MILLIGRAM, PER DAY (ON ENCOUNTER DAY 10)
     Route: 065
  4. MOGAMULIZUMAB [Suspect]
     Active Substance: MOGAMULIZUMAB
     Indication: Cutaneous T-cell lymphoma
     Dosage: UNK
     Route: 065
  5. BRENTUXIMAB [Suspect]
     Active Substance: BRENTUXIMAB
     Indication: Cutaneous T-cell lymphoma
     Dosage: UNK
     Route: 065
  6. CYCLOPHOSPHAMIDE [Suspect]
     Active Substance: CYCLOPHOSPHAMIDE
     Indication: Cutaneous T-cell lymphoma
     Dosage: UNK
     Route: 065
  7. METHYLPREDNISOLONE [Suspect]
     Active Substance: METHYLPREDNISOLONE
     Indication: Neuralgia
     Dosage: 70 MILLIGRAM, PER DAY, ON HOSPITAL DAY 1 TO 16 AND HOSPITAL DAY 25 TO 28
     Route: 042
  8. METHYLPREDNISOLONE [Suspect]
     Active Substance: METHYLPREDNISOLONE
     Indication: Inflammatory pain
     Dosage: 60 MILLIGRAM, PER DAY, ON HOSPITAL DAY 17 TO 19
     Route: 042
  9. METHYLPREDNISOLONE [Suspect]
     Active Substance: METHYLPREDNISOLONE
     Dosage: 40 MILLIGRAM PER DAY, ON HOSPITAL DAY 20 TO 24
     Route: 042
  10. ACETAMINOPHEN [Concomitant]
     Active Substance: ACETAMINOPHEN
     Indication: Neuralgia
     Dosage: 1 GRAM, EVERY 8 HOURS, FROM ENCOUNTER DAY 1 TO 10 AND HOSPITAL DAY 1 TO 19
     Route: 042
  11. ACETAMINOPHEN [Concomitant]
     Active Substance: ACETAMINOPHEN
     Indication: Inflammatory pain
  12. IBUPROFEN [Concomitant]
     Active Substance: IBUPROFEN
     Indication: Cancer pain
     Dosage: 400 MILLIGRAM, EVERY 12 HRS, FROM ENCOUNTER DAY 1 TO 10
     Route: 065
  13. DULOXETINE [Concomitant]
     Active Substance: DULOXETINE
     Indication: Inflammatory pain
     Dosage: 30 MILLIGRAM, PER DAY, ON HOSPITAL DAY 1 TO 5 AND NIGHTLY AT BEDTIME ON HOSPITAL DAY 6 TO 10
     Route: 048
  14. DULOXETINE [Concomitant]
     Active Substance: DULOXETINE
     Indication: Neuralgia
  15. LORAZEPAM [Concomitant]
     Active Substance: LORAZEPAM
     Indication: Sedation
     Dosage: 0.5 MILLIGRAM, EVERY 6 HRS, AS NEEDED ON HOSPITAL DAY 6 TO 10
     Route: 042
  16. LORAZEPAM [Concomitant]
     Active Substance: LORAZEPAM
     Dosage: 1 MILLIGRAM, EVERY 12 HRS, ON HOSPITAL DAY 11 TO 19
     Route: 042
  17. LORAZEPAM [Concomitant]
     Active Substance: LORAZEPAM
     Dosage: 1 MILLIGRAM, EVERY 6 HRS, ON HOSPITAL DAY 20 TO 28
     Route: 042
  18. KETOROLAC [Concomitant]
     Active Substance: KETOROLAC TROMETHAMINE
     Indication: Neuralgia
     Dosage: 15 MILLIGRAM, EVERY 6 HRS, AS NEEDED ON HOSPITAL DAY 1 TO 16
     Route: 042
  19. KETOROLAC [Concomitant]
     Active Substance: KETOROLAC TROMETHAMINE
     Indication: Inflammatory pain
  20. PROPOFOL [Concomitant]
     Active Substance: PROPOFOL
     Indication: Sedation
     Dosage: 50 MICROGRAM/KILOGRAM, ON HOSPITAL DAY 17 TO 28
     Route: 042
  21. DEXMEDETOMIDINE [Concomitant]
     Active Substance: DEXMEDETOMIDINE
     Indication: Sedation
     Dosage: 1.4 MICROGRAM/KILOGRAM, EVERY HOUR, ON HOSPITAL DAY 11 TO 16
     Route: 042
  22. DEXMEDETOMIDINE [Concomitant]
     Active Substance: DEXMEDETOMIDINE
     Dosage: 0.6 MICROGRAM/KILOGRAM, EVERY HOUR, ON HOSPITAL DAY 17 TO 19
     Route: 042
  23. HALOPERIDOL [Concomitant]
     Active Substance: HALOPERIDOL
     Indication: Product used for unknown indication
     Dosage: 1 MILLIGRAM, PER DAY, NIGHTLY AT BEDTIME, ON HOSPITAL DAY 11 TO 16
     Route: 042

REACTIONS (3)
  - Sepsis [Fatal]
  - Superinfection bacterial [Unknown]
  - Off label use [Unknown]
